FAERS Safety Report 4330476-X (Version None)
Quarter: 2004Q1

REPORT INFORMATION
  Report Type: 
  Country: None (occurrence: None)
  Receive Date: 20040329
  Receipt Date: 20021120
  Transmission Date: 20041129
  Serious: Yes (Life-Threatening)
  Sender: FDA-Public Use
  Company Number: 2002IC000323

PATIENT
  Age: 43 Year
  Sex: Female

DRUGS (3)
  1. FLUOROURACIL [Suspect]
     Indication: BREAST CANCER
     Dosage: 800 MG, PER CYCLE; INTRAVENOUS
     Route: 042
     Dates: start: 19981103, end: 19990218
  2. ENDOXAN (CYCLOPHOSPHAMIDE 1069 MG) [Suspect]
     Dosage: 815 MG; PERCYCLE; INTRAVENOUS
     Route: 042
     Dates: start: 19981103, end: 19990218
  3. FARMORUBICINE (EPIRUBICINE CHLORHYDRATE 10 MG) [Suspect]
     Dosage: 160 MG; PER CYCLE; INTRAVENOUS
     Route: 042
     Dates: start: 19981103, end: 19990218

REACTIONS (1)
  - EJECTION FRACTION DECREASED [None]
